FAERS Safety Report 25035283 (Version 1)
Quarter: 2025Q1

REPORT INFORMATION
  Report Type: Report from Study
  Country: US (occurrence: US)
  Receive Date: 20250304
  Receipt Date: 20250304
  Transmission Date: 20250409
  Serious: Yes (Other)
  Sender: SANOFI AVENTIS
  Company Number: US-DialogSolutions-SAAVPROD-PI743434-C14

PATIENT

DRUGS (6)
  1. OXALIPLATIN [Suspect]
     Active Substance: OXALIPLATIN
     Indication: Diffuse large B-cell lymphoma
     Dosage: 100 MG/M2, QOW
     Route: 042
  2. PREDNISOLONE [Suspect]
     Active Substance: PREDNISOLONE
     Indication: Prophylaxis
  3. EPCORITAMAB [Suspect]
     Active Substance: EPCORITAMAB
     Indication: Diffuse large B-cell lymphoma
     Dosage: 48 MG, QW
     Route: 058
  4. GEMCITABINE [Suspect]
     Active Substance: GEMCITABINE
     Indication: Diffuse large B-cell lymphoma
     Dosage: 1000 MG/M2, QOW
     Route: 042
  5. DIPHENHYDRAMINE [Concomitant]
     Active Substance: DIPHENHYDRAMINE
     Dosage: ORAL OR INTRAVENOUS DIPHENHYDRAMINE 50 MG (OR EQUIVALENT) ONCE DAILY ON DAYS 1, 8, 15, AND 22 OF CYC
  6. ACETAMINOPHEN [Concomitant]
     Active Substance: ACETAMINOPHEN
     Dosage: 650 TO 1000 MG ONCE DAILY ON DAYS 1, 8, 15, AND 22 OF CYCLE 1
     Route: 048

REACTIONS (5)
  - Hemiparesis [Unknown]
  - Myelitis [Unknown]
  - Urinary tract infection [Unknown]
  - Fall [Unknown]
  - Off label use [Unknown]
